FAERS Safety Report 18981517 (Version 1)
Quarter: 2021Q1

REPORT INFORMATION
  Report Type: Spontaneous
  Country: US (occurrence: US)
  Receive Date: 20210308
  Receipt Date: 20210308
  Transmission Date: 20210420
  Serious: No
  Sender: FDA-Public Use
  Company Number: None

PATIENT
  Age: 81 Year
  Sex: Female
  Weight: 91.35 kg

DRUGS (17)
  1. CALTRATE 600+D PLUS MINERALS [Concomitant]
  2. METOPROLOL SUCCINATE ER [Concomitant]
     Active Substance: METOPROLOL SUCCINATE
  3. GABAPENTIN. [Concomitant]
     Active Substance: GABAPENTIN
  4. MAGNESIUM OXIDE. [Concomitant]
     Active Substance: MAGNESIUM OXIDE
  5. ZETIA [Concomitant]
     Active Substance: EZETIMIBE
  6. AMIODARONE HCL [Concomitant]
     Active Substance: AMIODARONE HYDROCHLORIDE
  7. ELIQUIS [Concomitant]
     Active Substance: APIXABAN
  8. TORSEMIDE. [Concomitant]
     Active Substance: TORSEMIDE
  9. ATORVASTATIN CALCIUM. [Concomitant]
     Active Substance: ATORVASTATIN CALCIUM
  10. HAIR AND NAILS SUPPLEMENT [Concomitant]
  11. SENOKOT?S [Concomitant]
     Active Substance: DOCUSATE SODIUM\SENNOSIDES
  12. VITAMIN D3 [Concomitant]
     Active Substance: CHOLECALCIFEROL
  13. ASPIRIN 81 [Concomitant]
     Active Substance: ASPIRIN
  14. DESOXIMETASONE. [Concomitant]
     Active Substance: DESOXIMETASONE
  15. VITAMIN B12 [Concomitant]
     Active Substance: CYANOCOBALAMIN
  16. LORBRENA [Suspect]
     Active Substance: LORLATINIB
     Indication: LUNG NEOPLASM MALIGNANT
     Route: 048
     Dates: start: 20210209
  17. PRESERVISION AREDS 2 [Concomitant]
     Active Substance: MINERALS\VITAMINS

REACTIONS (2)
  - Depressed level of consciousness [None]
  - Pruritus [None]

NARRATIVE: CASE EVENT DATE: 20210308
